FAERS Safety Report 7654613-4 (Version None)
Quarter: 2011Q3

REPORT INFORMATION
  Report Type: 
  Country: None (occurrence: None)
  Receive Date: 20110803
  Receipt Date: 20110725
  Transmission Date: 20111222
  Serious: Yes (Other)
  Sender: FDA-Public Use
  Company Number: US-ASTRAZENECA-2011SE44277

PATIENT
  Age: 60 Year
  Sex: Female

DRUGS (15)
  1. HYZAAR [Concomitant]
     Indication: HYPERTENSION
     Dosage: 100/25 MG DAILY
  2. NEXIUM [Suspect]
     Route: 048
     Dates: start: 20110101, end: 20110101
  3. HYDROCODONE BITARTRATE [Concomitant]
  4. VYTORIN [Concomitant]
     Indication: BLOOD CHOLESTEROL INCREASED
     Dosage: 10/40 MG DAILY
  5. SINGULAIR [Concomitant]
     Indication: MULTIPLE ALLERGIES
  6. NEXIUM [Suspect]
     Indication: GASTROOESOPHAGEAL REFLUX DISEASE
     Route: 048
  7. NEXIUM [Suspect]
     Indication: GASTRITIS
     Route: 048
  8. PROTONIX [Suspect]
     Indication: GASTROOESOPHAGEAL REFLUX DISEASE
     Route: 048
  9. PROTONIX [Suspect]
     Route: 048
     Dates: start: 20110705
  10. NEXIUM [Suspect]
     Route: 048
     Dates: start: 20110101, end: 20110101
  11. PROTONIX [Suspect]
     Indication: GASTRITIS
     Route: 048
  12. PROTONIX [Suspect]
     Route: 048
     Dates: start: 20110705
  13. MELOXICAM [Concomitant]
     Indication: ARTHRITIS
  14. LORTAB [Concomitant]
  15. XANAX [Concomitant]
     Indication: DEPRESSION

REACTIONS (7)
  - PAIN [None]
  - SLEEP DISORDER DUE TO GENERAL MEDICAL CONDITION, INSOMNIA TYPE [None]
  - DRUG INEFFECTIVE [None]
  - ABDOMINAL PAIN UPPER [None]
  - DIARRHOEA [None]
  - DYSPEPSIA [None]
  - APHAGIA [None]
